FAERS Safety Report 14614770 (Version 1)
Quarter: 2018Q1

REPORT INFORMATION
  Report Type: Spontaneous
  Country: FR (occurrence: FR)
  Receive Date: 20180308
  Receipt Date: 20180308
  Transmission Date: 20180509
  Serious: Yes (Hospitalization, Other)
  Sender: FDA-Public Use
  Company Number: FR-MERCK KGAA-2043327

PATIENT
  Age: 58 Year
  Sex: Male

DRUGS (1)
  1. NOVOTHYROX [Suspect]
     Active Substance: LEVOTHYROXINE SODIUM
     Indication: HYPOTHYROIDISM
     Route: 065
     Dates: start: 20170316

REACTIONS (20)
  - Decreased appetite [Recovering/Resolving]
  - Depression [Recovering/Resolving]
  - Amnesia [Recovering/Resolving]
  - Serum ferritin increased [Recovering/Resolving]
  - Eating disorder [Recovering/Resolving]
  - Dizziness [Recovering/Resolving]
  - Irritability [Recovering/Resolving]
  - Weight decreased [Recovering/Resolving]
  - Diarrhoea [Recovering/Resolving]
  - Insomnia [Recovering/Resolving]
  - Social avoidant behaviour [Recovering/Resolving]
  - Gait disturbance [Recovering/Resolving]
  - Blood thyroid stimulating hormone increased [Recovering/Resolving]
  - Gastritis [Recovering/Resolving]
  - Muscle spasms [Recovering/Resolving]
  - Impaired work ability [Recovering/Resolving]
  - Tremor [Recovering/Resolving]
  - Loss of personal independence in daily activities [Recovering/Resolving]
  - Fatigue [Recovering/Resolving]
  - Hypotonia [Recovering/Resolving]

NARRATIVE: CASE EVENT DATE: 20171005
